FAERS Safety Report 10241356 (Version 1)
Quarter: 2014Q2

REPORT INFORMATION
  Report Type: Spontaneous
  Country: US (occurrence: US)
  Receive Date: 20140617
  Receipt Date: 20140617
  Transmission Date: 20141212
  Serious: No
  Sender: FDA-Public Use
  Company Number: US-009507513-1406USA006997

PATIENT
  Sex: Male

DRUGS (1)
  1. COZAAR [Suspect]
     Dosage: UNK
     Route: 048
     Dates: start: 201404, end: 2014

REACTIONS (1)
  - Drug effect incomplete [Unknown]
